FAERS Safety Report 5391773-2 (Version None)
Quarter: 2007Q3

REPORT INFORMATION
  Report Type: 
  Country: None (occurrence: None)
  Receive Date: 20070717
  Receipt Date: 20070705
  Transmission Date: 20080115
  Serious: Yes (Hospitalization, Other)
  Sender: FDA-Public Use
  Company Number: 2007-02333

PATIENT
  Age: 70 Year
  Sex: Male

DRUGS (7)
  1. VELCADE [Suspect]
     Indication: MULTIPLE MYELOMA
     Dosage: 3.50 MG, INTRAVENOUS
     Route: 042
     Dates: start: 20070327, end: 20070518
  2. SPIRIVA [Concomitant]
  3. CRESTOR (ROSUSVASTATIN) [Concomitant]
  4. METOPROLOL TARTRATE [Concomitant]
  5. WARFARIN SODIUM [Concomitant]
  6. PRILOSEC [Concomitant]
  7. PLENDIL [Concomitant]

REACTIONS (4)
  - ATRIAL FIBRILLATION [None]
  - BRADYCARDIA [None]
  - BRONCHITIS CHRONIC [None]
  - PRESYNCOPE [None]
